FAERS Safety Report 17134328 (Version 1)
Quarter: 2019Q4

REPORT INFORMATION
  Report Type: Spontaneous
  Country: US (occurrence: US)
  Receive Date: 20191210
  Receipt Date: 20191210
  Transmission Date: 20200122
  Serious: Yes (Hospitalization, Other)
  Sender: FDA-Public Use
  Company Number: US-SA-2019SA340465

PATIENT
  Age: 76 Year
  Sex: Male

DRUGS (3)
  1. PRALUENT [Suspect]
     Active Substance: ALIROCUMAB
     Dosage: 75 MG, QOW
     Route: 058
     Dates: start: 2018, end: 20191201
  2. PRALUENT [Suspect]
     Active Substance: ALIROCUMAB
     Indication: BLOOD CHOLESTEROL ABNORMAL
     Dosage: UNK
  3. ROSUVASTATIN CALCIUM. [Suspect]
     Active Substance: ROSUVASTATIN CALCIUM

REACTIONS (12)
  - Condition aggravated [Recovered/Resolved]
  - Product dose omission [Unknown]
  - Mobility decreased [Unknown]
  - Pruritus [Unknown]
  - Coronary artery occlusion [Unknown]
  - Abdominal discomfort [Unknown]
  - Dry skin [Recovered/Resolved]
  - Rash pruritic [Unknown]
  - Skin swelling [Recovered/Resolved]
  - Rash erythematous [Unknown]
  - Muscle disorder [Unknown]
  - Myalgia [Recovered/Resolved]
